FAERS Safety Report 7795104-X (Version None)
Quarter: 2011Q4

REPORT INFORMATION
  Report Type: 
  Country: None (occurrence: None)
  Receive Date: 20111004
  Receipt Date: 20110928
  Transmission Date: 20120403
  Serious: Yes (Hospitalization)
  Sender: FDA-Public Use
  Company Number: DE-AMGEN-UK383241

PATIENT
  Age: 72 Year
  Sex: Male

DRUGS (3)
  1. DOXYCYCLINE [Concomitant]
     Dosage: UNK UNK, UNK
     Dates: end: 20091227
  2. IRINOTECAN HCL [Concomitant]
     Dosage: 320 MG, ONE TIME DOSE
     Route: 042
     Dates: start: 20100203, end: 20100203
  3. PANITUMUMAB [Suspect]
     Indication: COLORECTAL CANCER
     Dosage: 320 MG, UNK
     Route: 042
     Dates: start: 20091111

REACTIONS (1)
  - DIARRHOEA [None]
